FAERS Safety Report 9478081 (Version 1)
Quarter: 2013Q3

REPORT INFORMATION
  Report Type: Spontaneous
  Country: FR (occurrence: FR)
  Receive Date: 20130827
  Receipt Date: 20130827
  Transmission Date: 20140515
  Serious: Yes (Hospitalization)
  Sender: FDA-Public Use
  Company Number: FR-MYLANLABS-2013S1018130

PATIENT
  Age: 16 Year
  Sex: Male

DRUGS (18)
  1. VANCOMYCIN [Suspect]
     Indication: STAPHYLOCOCCAL BACTERAEMIA
     Route: 042
     Dates: start: 20130322, end: 20130411
  2. VANCOMYCIN [Suspect]
     Indication: STAPHYLOCOCCAL BACTERAEMIA
     Route: 042
     Dates: start: 20130519, end: 20130520
  3. VANCOMYCIN [Suspect]
     Indication: STAPHYLOCOCCAL BACTERAEMIA
     Route: 042
     Dates: start: 20130614
  4. FLUCONAZOLE ARROW [Suspect]
     Indication: SYSTEMIC CANDIDA
     Route: 042
     Dates: start: 20130325
  5. FLUCONAZOLE ARROW [Suspect]
     Indication: SYSTEMIC CANDIDA
     Route: 042
     Dates: start: 20130326, end: 20130411
  6. METRONIDAZOLE B BRAUN [Suspect]
     Indication: SYSTEMIC CANDIDA
     Route: 042
     Dates: start: 20130322, end: 20130323
  7. METRONIDAZOLE B BRAUN [Suspect]
     Indication: SYSTEMIC CANDIDA
     Route: 048
     Dates: start: 20130324, end: 20130327
  8. CEFTRIAXONE PANPHARMA [Suspect]
     Indication: STAPHYLOCOCCAL BACTERAEMIA
     Route: 042
     Dates: start: 20130322, end: 20130327
  9. CEFOTAXIME PANPHARMA [Suspect]
     Indication: STAPHYLOCOCCAL BACTERAEMIA
     Route: 042
     Dates: start: 20130328, end: 20130402
  10. CEFOTAXIME PANPHARMA [Suspect]
     Indication: STAPHYLOCOCCAL BACTERAEMIA
     Route: 042
     Dates: start: 20130519, end: 20130520
  11. CEFOTAXIME PANPHARMA [Suspect]
     Indication: STAPHYLOCOCCAL BACTERAEMIA
     Route: 042
     Dates: start: 20130603, end: 20130611
  12. INEXIUM [Concomitant]
     Dates: start: 20130316
  13. EUPANTOL [Concomitant]
     Dates: start: 20130316, end: 20130327
  14. ZOPHREN [Concomitant]
     Indication: NAUSEA
     Dates: start: 20130405
  15. METHYLPREDNISOLONE [Concomitant]
     Dates: start: 20130408, end: 20130412
  16. DOLIPRANE [Concomitant]
     Indication: PAIN
     Dates: start: 20130405, end: 20130411
  17. NUBAIN [Concomitant]
     Dates: start: 20130404, end: 20130411
  18. HYDROXYZINE RENAUDIN [Concomitant]
     Dates: start: 20130407

REACTIONS (1)
  - Pancreatitis acute [Not Recovered/Not Resolved]
